FAERS Safety Report 4801359-3 (Version None)
Quarter: 2005Q4

REPORT INFORMATION
  Report Type: 
  Country: None (occurrence: None)
  Receive Date: 20051017
  Receipt Date: 20051006
  Transmission Date: 20060501
  Serious: Yes (Death, Hospitalization)
  Sender: FDA-Public Use
  Company Number: US-MERCK-0510USA05140

PATIENT
  Age: 76 Year
  Sex: Male
  Weight: 43 kg

DRUGS (11)
  1. VIOXX [Suspect]
     Indication: ARTHRITIS
     Route: 048
     Dates: start: 20020109, end: 20020801
  2. VIOXX [Suspect]
     Route: 048
     Dates: start: 20020109, end: 20020801
  3. ULTRACET [Concomitant]
     Indication: PAIN
     Route: 065
     Dates: start: 20010514, end: 20020830
  4. PROMETHAZINE [Concomitant]
     Indication: PROPHYLAXIS OF NAUSEA AND VOMITING
     Route: 065
  5. RANITIDINE [Concomitant]
     Indication: STOMACH DISCOMFORT
     Route: 065
  6. ULTRAM [Concomitant]
     Indication: PAIN
     Route: 065
     Dates: start: 20010514, end: 20020830
  7. KETOROLAC TROMETHAMINE [Concomitant]
     Indication: PAIN
     Route: 065
  8. MEPERIDINE HYDROCHLORIDE [Concomitant]
     Indication: PAIN
     Route: 065
     Dates: start: 20010514, end: 20020830
  9. HYDROMORPHONE HYDROCHLORIDE [Concomitant]
     Indication: PAIN
     Route: 065
     Dates: start: 20010514, end: 20020830
  10. AMIODARONE MSD [Concomitant]
     Route: 065
  11. ASPIRIN [Concomitant]
     Route: 048
     Dates: start: 20010409, end: 20020820

REACTIONS (19)
  - ABDOMINAL HERNIA [None]
  - ABDOMINAL PAIN [None]
  - ABDOMINAL PAIN UPPER [None]
  - ACUTE MYOCARDIAL INFARCTION [None]
  - CARDIAC FAILURE CONGESTIVE [None]
  - CHOLANGITIS [None]
  - CHOLELITHIASIS [None]
  - CORONARY ARTERY DISEASE [None]
  - DECREASED APPETITE [None]
  - DEHYDRATION [None]
  - DYSPNOEA [None]
  - GASTRIC DISORDER [None]
  - GASTROOESOPHAGEAL REFLUX DISEASE [None]
  - HEPATIC FAILURE [None]
  - PANCREATIC PSEUDOCYST [None]
  - RENAL FAILURE [None]
  - RENAL FAILURE CHRONIC [None]
  - TRANSIENT ISCHAEMIC ATTACK [None]
  - WEIGHT DECREASED [None]
